FAERS Safety Report 21346152 (Version 12)
Quarter: 2025Q1

REPORT INFORMATION
  Report Type: Spontaneous
  Country: CA (occurrence: CA)
  Receive Date: 20220917
  Receipt Date: 20250325
  Transmission Date: 20250408
  Serious: Yes (Other)
  Sender: CELLTRION
  Company Number: CA-CELLTRION INC.-2022CA007253

PATIENT

DRUGS (19)
  1. INFLECTRA [Suspect]
     Active Substance: INFLIXIMAB-DYYB
     Indication: Crohn^s disease
     Route: 042
  2. INFLECTRA [Suspect]
     Active Substance: INFLIXIMAB-DYYB
     Route: 042
     Dates: start: 20220513
  3. INFLECTRA [Suspect]
     Active Substance: INFLIXIMAB-DYYB
  4. INFLECTRA [Suspect]
     Active Substance: INFLIXIMAB-DYYB
     Dates: start: 20230217
  5. INFLECTRA [Suspect]
     Active Substance: INFLIXIMAB-DYYB
  6. INFLECTRA [Suspect]
     Active Substance: INFLIXIMAB-DYYB
  7. INFLECTRA [Suspect]
     Active Substance: INFLIXIMAB-DYYB
     Dates: start: 20240909
  8. INFLECTRA [Suspect]
     Active Substance: INFLIXIMAB-DYYB
     Dates: start: 20241109
  9. INFLECTRA [Suspect]
     Active Substance: INFLIXIMAB-DYYB
     Route: 042
     Dates: start: 20241108
  10. INFLECTRA [Suspect]
     Active Substance: INFLIXIMAB-DYYB
     Route: 042
     Dates: start: 20250110
  11. INFLECTRA [Suspect]
     Active Substance: INFLIXIMAB-DYYB
     Route: 042
     Dates: start: 20250317
  12. BUPROPION HYDROCHLORIDE XL [Concomitant]
     Active Substance: BUPROPION HYDROCHLORIDE
  13. DESVENLAFAXINE [Concomitant]
     Active Substance: DESVENLAFAXINE
  14. VAGIFEM [Concomitant]
     Active Substance: ESTRADIOL
  15. TYLENOL ARTHRITIS PAIN [Concomitant]
     Active Substance: ACETAMINOPHEN
  16. CEFIXIME [Concomitant]
     Active Substance: CEFIXIME
  17. GABAPENTIN [Concomitant]
     Active Substance: GABAPENTIN
  18. MORPHINE [Concomitant]
     Active Substance: MORPHINE
  19. VITAMIN D NOS [Concomitant]
     Active Substance: CHOLECALCIFEROL\ERGOCALCIFEROL

REACTIONS (16)
  - Tendonitis [Unknown]
  - Migraine [Recovered/Resolved]
  - Impaired work ability [Unknown]
  - Fatigue [Not Recovered/Not Resolved]
  - Vitamin D decreased [Unknown]
  - Initial insomnia [Unknown]
  - Asthenia [Unknown]
  - Poor quality sleep [Unknown]
  - Oral herpes [Recovering/Resolving]
  - Constipation [Unknown]
  - Ligament sprain [Not Recovered/Not Resolved]
  - Off label use [Unknown]
  - Intentional product use issue [Unknown]
  - Off label use [Unknown]
  - Off label use [Unknown]
  - Inappropriate schedule of product administration [Unknown]

NARRATIVE: CASE EVENT DATE: 20220701
